FAERS Safety Report 10756774 (Version 4)
Quarter: 2015Q3

REPORT INFORMATION
  Report Type: Spontaneous
  Country: US (occurrence: US)
  Receive Date: 20150203
  Receipt Date: 20150706
  Transmission Date: 20151125
  Serious: Yes (Death, Hospitalization, Other)
  Sender: FDA-Public Use
  Company Number: US-MERCK-1502USA000544

PATIENT
  Sex: Male
  Weight: 74.83 kg

DRUGS (3)
  1. JANUMET [Suspect]
     Active Substance: METFORMIN HYDROCHLORIDE\SITAGLIPTIN PHOSPHATE
     Indication: TYPE 2 DIABETES MELLITUS
     Dosage: 50-1000 MG, BID
     Route: 048
     Dates: start: 20121025, end: 20130709
  2. JANUVIA [Suspect]
     Active Substance: SITAGLIPTIN PHOSPHATE
     Dosage: 50 MG, BID
     Route: 048
     Dates: end: 20130713
  3. JANUVIA [Suspect]
     Active Substance: SITAGLIPTIN PHOSPHATE
     Indication: TYPE 2 DIABETES MELLITUS
     Dosage: 50 MG, QD
     Route: 048
     Dates: start: 20121025, end: 201408

REACTIONS (52)
  - Pneumonia [Unknown]
  - Mitral valve incompetence [Unknown]
  - Pleural effusion [Unknown]
  - Back pain [Unknown]
  - Pancreatic carcinoma metastatic [Fatal]
  - Septic shock [Unknown]
  - Pneumonia [Unknown]
  - Aspartate aminotransferase increased [Unknown]
  - Viral cardiomyopathy [Unknown]
  - Diverticulum [Recovering/Resolving]
  - Diabetic neuropathy [Unknown]
  - Decubitus ulcer [Unknown]
  - Drug ineffective [Unknown]
  - Metastases to lung [Unknown]
  - Acute prerenal failure [Recovering/Resolving]
  - Blood alkaline phosphatase increased [Unknown]
  - Neutropenia [Unknown]
  - Malnutrition [Unknown]
  - Metastases to bone [Unknown]
  - Lactic acidosis [Recovering/Resolving]
  - Neck pain [Unknown]
  - Haematuria [Unknown]
  - Cholelithiasis [Unknown]
  - Hyperchromic anaemia [Unknown]
  - Bronchitis [Unknown]
  - Enterovesical fistula [Unknown]
  - Paraesthesia [Unknown]
  - Fluid overload [Unknown]
  - Acute respiratory failure [Unknown]
  - Sepsis [Unknown]
  - Pancytopenia [Unknown]
  - Arthroscopic surgery [Unknown]
  - Gastrooesophageal reflux disease [Unknown]
  - Hypertension [Unknown]
  - Splenomegaly [Unknown]
  - Metabolic cardiomyopathy [Unknown]
  - Metabolic alkalosis [Unknown]
  - Cardiac failure congestive [Unknown]
  - Constipation [Unknown]
  - Musculoskeletal pain [Unknown]
  - Bradycardia [Unknown]
  - Pneumonia aspiration [Unknown]
  - Thrombocytopenia [Recovering/Resolving]
  - Peripheral swelling [Unknown]
  - Hyperbilirubinaemia [Unknown]
  - Urinary tract infection [Recovering/Resolving]
  - Pyelonephritis [Recovered/Resolved]
  - Hyperlipidaemia [Unknown]
  - Aortic valve calcification [Unknown]
  - Biliary dyskinesia [Unknown]
  - Respiratory acidosis [Unknown]
  - Failure to thrive [Unknown]

NARRATIVE: CASE EVENT DATE: 2013
